FAERS Safety Report 4401042-2 (Version None)
Quarter: 2004Q3

REPORT INFORMATION
  Report Type: 
  Country: None (occurrence: None)
  Receive Date: 20040907
  Receipt Date: 20031002
  Transmission Date: 20050211
  Serious: Yes (Hospitalization)
  Sender: FDA-Public Use
  Company Number: US-BRISTOL-MYERS SQUIBB COMPANY-12401345

PATIENT
  Age: 55 Year
  Sex: Male

DRUGS (8)
  1. COUMADIN [Suspect]
     Indication: PROPHYLAXIS
     Dosage: DOSE INTERRUPTED FOR PROCEDURE: WITHHELD 09 OCT AND RE-INTRODUCED 13 OCT.
     Route: 048
     Dates: start: 20030916
  2. LOVENOX [Suspect]
     Route: 058
     Dates: start: 20030316
  3. NEURONTIN [Concomitant]
  4. ZINC CREAM [Concomitant]
  5. ZOLOFT [Concomitant]
  6. HALDOL [Concomitant]
     Dosage: AT BEDTIME
  7. CLONAZEPAM [Concomitant]
  8. TRIAMCINOLONE [Concomitant]

REACTIONS (1)
  - DRUG INEFFECTIVE [None]
